FAERS Safety Report 15213482 (Version 3)
Quarter: 2018Q4

REPORT INFORMATION
  Report Type: Spontaneous
  Country: CA (occurrence: CA)
  Receive Date: 20180730
  Receipt Date: 20181026
  Transmission Date: 20190204
  Serious: Yes (Other)
  Sender: FDA-Public Use
  Company Number: CA-CELLTRION INC.-2017CA009847

PATIENT

DRUGS (11)
  1. INFLECTRA [Suspect]
     Active Substance: INFLIXIMAB-DYYB
     Indication: PSORIATIC ARTHROPATHY
     Dosage: 500 MG, , EVERY 0, 2, 6 WEEKS, THEN EVERY 6 WEEKS
     Route: 042
     Dates: start: 20170817
  2. INFLECTRA [Suspect]
     Active Substance: INFLIXIMAB-DYYB
     Dosage: 500 MG , EVERY 0, 2, 6 WEEKS, THEN EVERY 6 WEEKS
     Route: 042
     Dates: start: 20180426
  3. METHOTREXATE. [Concomitant]
     Active Substance: METHOTREXATE
     Dosage: UNK
     Route: 065
  4. INFLECTRA [Suspect]
     Active Substance: INFLIXIMAB-DYYB
     Dosage: 500 MG, , EVERY 0, 2, 6 WEEKS, THEN EVERY 6 WEEKS
     Route: 042
     Dates: start: 20180315
  5. INFLECTRA [Suspect]
     Active Substance: INFLIXIMAB-DYYB
     Dosage: 500 MG, , EVERY 0, 2, 6 WEEKS, THEN EVERY 6 WEEKS
     Route: 042
     Dates: start: 20180717
  6. FOLIC ACID. [Concomitant]
     Active Substance: FOLIC ACID
     Dosage: UNK
     Route: 065
  7. OTEZLA [Concomitant]
     Active Substance: APREMILAST
     Dosage: UNK
     Route: 065
  8. SULFASALAZINE. [Concomitant]
     Active Substance: SULFASALAZINE
     Dosage: UNK
     Route: 065
  9. IRON [Concomitant]
     Active Substance: IRON
     Dosage: UNK
     Route: 065
  10. INFLECTRA [Suspect]
     Active Substance: INFLIXIMAB-DYYB
     Dosage: 500 MG , EVERY 0, 2, 6 WEEKS, THEN EVERY 6 WEEKS
     Route: 042
     Dates: start: 20170831
  11. INFLECTRA [Suspect]
     Active Substance: INFLIXIMAB-DYYB
     Dosage: 500 MG , EVERY 0, 2, 6 WEEKS, THEN EVERY 6 WEEKS
     Route: 042
     Dates: start: 20180605

REACTIONS (5)
  - Blood pressure fluctuation [Unknown]
  - Weight increased [Unknown]
  - Drug effect incomplete [Unknown]
  - Product use issue [Unknown]
  - Vein rupture [Unknown]

NARRATIVE: CASE EVENT DATE: 20170817
